FAERS Safety Report 24756269 (Version 2)
Quarter: 2025Q1

REPORT INFORMATION
  Report Type: Spontaneous
  Country: DE (occurrence: DE)
  Receive Date: 20241220
  Receipt Date: 20250204
  Transmission Date: 20250409
  Serious: Yes (Hospitalization)
  Sender: MERCK
  Company Number: DE-TILLOTTSAB-20240574

PATIENT
  Age: 56 Year
  Sex: Female

DRUGS (1)
  1. FIDAXOMICIN [Suspect]
     Active Substance: FIDAXOMICIN
     Indication: Clostridium difficile infection
     Dosage: 200 MILLIGRAM, QD
     Dates: start: 20241001, end: 20241010

REACTIONS (1)
  - Drug ineffective [Recovering/Resolving]

NARRATIVE: CASE EVENT DATE: 20241010
